FAERS Safety Report 4965884-7 (Version None)
Quarter: 2006Q2

REPORT INFORMATION
  Report Type: 
  Country: None (occurrence: None)
  Receive Date: 20060407
  Receipt Date: 20060328
  Transmission Date: 20061013
  Serious: Yes (Hospitalization, Other)
  Sender: FDA-Public Use
  Company Number: PHBS2006CL04684

PATIENT
  Age: 10 Year
  Sex: Male

DRUGS (1)
  1. CATAFLAM [Suspect]
     Indication: TENDONITIS
     Dosage: 50 MG, Q12H
     Route: 048

REACTIONS (6)
  - BACK PAIN [None]
  - DIARRHOEA [None]
  - HEPATIC ENZYME INCREASED [None]
  - HEPATITIS [None]
  - RENAL FUNCTION TEST ABNORMAL [None]
  - VOMITING [None]
